FAERS Safety Report 24447092 (Version 2)
Quarter: 2024Q4

REPORT INFORMATION
  Report Type: Report from Study
  Country: US (occurrence: US)
  Receive Date: 20241016
  Receipt Date: 20241114
  Transmission Date: 20250115
  Serious: Yes (Other)
  Sender: BOEHRINGER INGELHEIM
  Company Number: US-BoehringerIngelheim-2024-BI-030658

PATIENT
  Age: 63 Year

DRUGS (3)
  1. SPEVIGO [Suspect]
     Active Substance: SPESOLIMAB-SBZO
     Indication: Generalised pustular psoriasis
     Dosage: PT HAD 2 INFUSIONS AND 2 DOSES OF SC MED
     Route: 058
     Dates: start: 20240528, end: 20240921
  2. SPEVIGO [Suspect]
     Active Substance: SPESOLIMAB-SBZO
     Route: 042
     Dates: start: 20240625, end: 20240625
  3. SPEVIGO [Suspect]
     Active Substance: SPESOLIMAB-SBZO
     Route: 058
     Dates: start: 20240821, end: 20240821

REACTIONS (15)
  - Generalised pustular psoriasis [Not Recovered/Not Resolved]
  - Generalised pustular psoriasis [Unknown]
  - Generalised pustular psoriasis [Recovered/Resolved]
  - Noninfective gingivitis [Not Recovered/Not Resolved]
  - Drug ineffective [Unknown]
  - Noninfective gingivitis [Recovered/Resolved]
  - COVID-19 [Unknown]
  - Pruritus [Not Recovered/Not Resolved]
  - Influenza like illness [Unknown]
  - Gingival recession [Not Recovered/Not Resolved]
  - Eye swelling [Unknown]
  - Peripheral swelling [Unknown]
  - Joint swelling [Unknown]
  - Palmoplantar pustulosis [Unknown]
  - Endodontic procedure [Unknown]

NARRATIVE: CASE EVENT DATE: 20240604
